FAERS Safety Report 24607736 (Version 2)
Quarter: 2025Q3

REPORT INFORMATION
  Report Type: Report from Study
  Country: US (occurrence: US)
  Receive Date: 20241112
  Receipt Date: 20250809
  Transmission Date: 20251021
  Serious: Yes (Other)
  Sender: ALEXION PHARMACEUTICALS
  Company Number: US-AstraZeneca-CH-00742506A

PATIENT
  Age: 54 Year
  Sex: Male

DRUGS (5)
  1. OSIMERTINIB [Suspect]
     Active Substance: OSIMERTINIB
     Indication: Non-small cell lung cancer
     Dosage: 80 MILLIGRAM, QD
     Dates: start: 20241101
  2. PEPCID [Concomitant]
     Active Substance: FAMOTIDINE
     Route: 065
  3. ALBUTEROL [Concomitant]
     Active Substance: ALBUTEROL
  4. MOTRIN IB [Concomitant]
     Active Substance: IBUPROFEN
  5. TRELEGY ELLIPTA [Concomitant]
     Active Substance: FLUTICASONE FUROATE\UMECLIDINIUM BROMIDE\VILANTEROL TRIFENATATE

REACTIONS (3)
  - Pulmonary mass [Not Recovered/Not Resolved]
  - Chest pain [Recovered/Resolved]
  - Gastrooesophageal reflux disease [Recovered/Resolved]

NARRATIVE: CASE EVENT DATE: 20241102
